FAERS Safety Report 23721822 (Version 2)
Quarter: 2024Q2

REPORT INFORMATION
  Report Type: Spontaneous
  Country: AU (occurrence: AU)
  Receive Date: 20240409
  Receipt Date: 20240416
  Transmission Date: 20240716
  Serious: Yes (Death, Life-Threatening, Hospitalization, Other)
  Sender: FDA-Public Use
  Company Number: AU-Accord-417389

PATIENT
  Age: 57 Year
  Sex: Male

DRUGS (1)
  1. TACROLIMUS [Suspect]
     Active Substance: TACROLIMUS
     Indication: Immunosuppressant drug therapy

REACTIONS (6)
  - Scedosporium infection [Fatal]
  - Endophthalmitis [Fatal]
  - Fungal endocarditis [Fatal]
  - Panophthalmitis [Recovering/Resolving]
  - Neutropenia [Recovering/Resolving]
  - Acute kidney injury [Unknown]
